FAERS Safety Report 15505695 (Version 2)
Quarter: 2018Q4

REPORT INFORMATION
  Report Type: Report from Study
  Country: US (occurrence: US)
  Receive Date: 20181016
  Receipt Date: 20181026
  Transmission Date: 20190205
  Serious: Yes (Death, Hospitalization)
  Sender: FDA-Public Use
  Company Number: US-ROCHE-2194448

PATIENT
  Age: 81 Year
  Sex: Male
  Weight: 65 kg

DRUGS (2)
  1. ATEZOLIZUMAB. [Suspect]
     Active Substance: ATEZOLIZUMAB
     Indication: MYELODYSPLASTIC SYNDROME
     Dosage: D8 AND D22?ON 24/SEP/2018, HE RECEIVED THE MOST RECENT DOSE.
     Route: 042
     Dates: start: 20180924
  2. GUADECITABINE [Suspect]
     Active Substance: GUADECITABINE
     Indication: MYELODYSPLASTIC SYNDROME
     Dosage: D1-D5
     Route: 058
     Dates: start: 20180922

REACTIONS (8)
  - Anaemia [Unknown]
  - Neutropenia [Unknown]
  - Cardiac arrest [Fatal]
  - Myelodysplastic syndrome [Fatal]
  - Respiratory failure [Fatal]
  - Pneumonitis [Unknown]
  - Pulmonary fibrosis [Fatal]
  - Platelet count decreased [Unknown]

NARRATIVE: CASE EVENT DATE: 20181001
